FAERS Safety Report 17690807 (Version 1)
Quarter: 2020Q2

REPORT INFORMATION
  Report Type: Spontaneous
  Country: US (occurrence: US)
  Receive Date: 20200422
  Receipt Date: 20200422
  Transmission Date: 20200714
  Serious: No
  Sender: FDA-Public Use
  Company Number: US-009507513-2004USA006152

PATIENT
  Sex: Female
  Weight: 64.4 kg

DRUGS (1)
  1. IMPLANON [Suspect]
     Active Substance: ETONOGESTREL
     Dosage: STRENGTH: 68 (UNITS NOT PROVIDED), 1 ROD, EVERY 3 YEARS
     Route: 059
     Dates: start: 2014, end: 201908

REACTIONS (1)
  - Incorrect product administration duration [Unknown]
